FAERS Safety Report 15790286 (Version 1)
Quarter: 2019Q1

REPORT INFORMATION
  Report Type: Spontaneous
  Country: GB (occurrence: GB)
  Receive Date: 20190104
  Receipt Date: 20190104
  Transmission Date: 20190417
  Serious: No
  Sender: FDA-Public Use
  Company Number: GB-LEXICON PHARMACEUTICALS, INC-18-1606-01547

PATIENT
  Age: 48 Year
  Sex: 0

DRUGS (4)
  1. TELOTRISTAT ETHYL [Suspect]
     Active Substance: TELOTRISTAT ETHYL
     Indication: DIARRHOEA
     Route: 048
     Dates: start: 201809
  2. LANREOTIDE [Concomitant]
     Active Substance: LANREOTIDE
  3. LANREOTIDE [Concomitant]
     Active Substance: LANREOTIDE
     Dates: start: 201105
  4. TELOTRISTAT ETHYL [Suspect]
     Active Substance: TELOTRISTAT ETHYL
     Indication: NEUROENDOCRINE TUMOUR
     Route: 048
     Dates: start: 201806, end: 201809

REACTIONS (1)
  - Abdominal pain upper [Recovering/Resolving]

NARRATIVE: CASE EVENT DATE: 2018
